FAERS Safety Report 8176925-0 (Version None)
Quarter: 2012Q1

REPORT INFORMATION
  Report Type: 
  Country: None (occurrence: None)
  Receive Date: 20120301
  Receipt Date: 20120221
  Transmission Date: 20120608
  Serious: Yes (Hospitalization)
  Sender: FDA-Public Use
  Company Number: NL-JNJFOC-20120211733

PATIENT
  Sex: Male
  Weight: 47.5 kg

DRUGS (2)
  1. HUMIRA [Concomitant]
     Indication: CROHN'S DISEASE
  2. REMICADE [Suspect]
     Indication: CROHN'S DISEASE
     Route: 042
     Dates: start: 20100615

REACTIONS (1)
  - CROHN'S DISEASE [None]
